FAERS Safety Report 6490527-3 (Version None)
Quarter: 2009Q4

REPORT INFORMATION
  Report Type: 
  Country: None (occurrence: None)
  Receive Date: 20091210
  Receipt Date: 20091210
  Transmission Date: 20100525
  Serious: Yes (Life-Threatening, Hospitalization)
  Sender: FDA-Public Use
  Company Number: None

PATIENT
  Age: 76 Year
  Sex: Female
  Weight: 65 kg

DRUGS (7)
  1. FENTANYL-100 [Suspect]
     Indication: ANAESTHESIA
     Dosage: 50 MCG, UNKNOWN, INTRAVENOUS
     Route: 042
     Dates: start: 20090511, end: 20090511
  2. MIDAZOLAM HYDROCHLORIDE [Suspect]
     Indication: DRUG USE FOR UNKNOWN INDICATION
     Dosage: 2 MG, UNKNOWN, INTRAVENOUS
     Route: 042
     Dates: start: 20090511, end: 20090511
  3. ONDANSETRON [Suspect]
     Indication: ANAESTHESIA
     Dosage: 4 MG, UNKNOWN, INTRAVENOUS
     Route: 042
     Dates: start: 20090511, end: 20090511
  4. PROPOFOL [Suspect]
     Indication: ANAESTHESIA
     Dosage: 100 MG, UNKNOWN, INTRAVENOUS
     Route: 042
     Dates: start: 20090511, end: 20090511
  5. CHLORHEXIDINE GLUCONATE [Suspect]
     Indication: DRUG USE FOR UNKNOWN INDICATION
     Dosage: UNKNOWN, UNKNOWN, TOPICAL
     Route: 061
     Dates: start: 20090511, end: 20090511
  6. VECURONIUM BROMIDE [Suspect]
     Indication: DRUG USE FOR UNKNOWN INDICATION
     Dosage: 7 MG, UNKNOWN, INTRAVENOUS
     Route: 042
     Dates: start: 20090511, end: 20090511
  7. BETAHISTINE [Concomitant]

REACTIONS (4)
  - HYPOTENSION [None]
  - SKIN TEST POSITIVE [None]
  - TRYPTASE INCREASED [None]
  - URTICARIA [None]
